FAERS Safety Report 20064540 (Version 6)
Quarter: 2022Q1

REPORT INFORMATION
  Report Type: Report from Study
  Country: US (occurrence: US)
  Receive Date: 20211112
  Receipt Date: 20220225
  Transmission Date: 20220423
  Serious: Yes (Hospitalization, Disabling, Other)
  Sender: FDA-Public Use
  Company Number: US-MALLINCKRODT-T202102958

PATIENT
  Sex: Male
  Weight: 112 kg

DRUGS (4)
  1. CORTICOTROPIN [Suspect]
     Active Substance: CORTICOTROPIN
     Indication: Sarcoidosis
     Dosage: 80 UNITS, TWO TIMES A WEEK
     Route: 058
     Dates: start: 20210615, end: 202107
  2. CORTICOTROPIN [Suspect]
     Active Substance: CORTICOTROPIN
     Indication: Pulmonary sarcoidosis
     Dosage: UNK
     Route: 065
     Dates: start: 20210727, end: 20211019
  3. PREDNISONE [Concomitant]
     Active Substance: PREDNISONE
     Indication: Product used for unknown indication
     Dosage: BID
     Route: 065
     Dates: start: 2021, end: 2021
  4. PREDNISONE [Concomitant]
     Active Substance: PREDNISONE
     Dosage: QD (DOSE DECREASED)
     Route: 065
     Dates: start: 2021, end: 2021

REACTIONS (17)
  - Diabetes mellitus [Recovering/Resolving]
  - Nephrolithiasis [Not Recovered/Not Resolved]
  - Hypotension [Recovering/Resolving]
  - Pyrexia [Recovering/Resolving]
  - Kidney infection [Not Recovered/Not Resolved]
  - Paralysis [Not Recovered/Not Resolved]
  - Ureteral stent insertion [Not Recovered/Not Resolved]
  - Calculus bladder [Not Recovered/Not Resolved]
  - Bladder operation [Unknown]
  - Surgery [Unknown]
  - Spinal fusion acquired [Not Recovered/Not Resolved]
  - Post procedural infection [Unknown]
  - Decubitus ulcer [Not Recovered/Not Resolved]
  - Blister [Not Recovered/Not Resolved]
  - Arthralgia [Not Recovered/Not Resolved]
  - Sensory disturbance [Not Recovered/Not Resolved]
  - Incorrect dose administered [Unknown]

NARRATIVE: CASE EVENT DATE: 20210101
